FAERS Safety Report 21090143 (Version 2)
Quarter: 2022Q3

REPORT INFORMATION
  Report Type: Spontaneous
  Country: US (occurrence: US)
  Receive Date: 20220715
  Receipt Date: 20220720
  Transmission Date: 20221027
  Serious: No
  Sender: FDA-Public Use
  Company Number: US-PFIZER INC-202200960527

PATIENT
  Sex: Male

DRUGS (11)
  1. PAXLOVID [Suspect]
     Active Substance: NIRMATRELVIR\RITONAVIR
     Indication: COVID-19 treatment
     Dosage: ONE 150 MG TABLET AND TWO OF THE 100 MG
  2. ALPHA LIPOIC ACID [Concomitant]
     Active Substance: .ALPHA.-LIPOIC ACID
     Dosage: 600 MG
  3. CREMAFFIN [Concomitant]
     Dosage: UNK
  4. GYPSUM [Concomitant]
     Dosage: UNK
  5. PAPAIN [Concomitant]
     Active Substance: PAPAIN
     Dosage: UNK
  6. BULBINE FRUTESCENS [Concomitant]
     Dosage: UNK
  7. HYALURONIC ACID [Concomitant]
     Active Substance: HYALURONIC ACID
     Dosage: UNK
  8. LIVERCARE [ACHILLEA MILLEFOLIUM;CAPPARIS SPINOSA;CICHORIUM INTYBUS;SEN [Concomitant]
     Dosage: UNK
  9. REISHI MUSHROOM [Concomitant]
     Dosage: UNK
  10. GRAPE SEED EXTRACT [VITIS VINIFERA SEED] [Concomitant]
     Dosage: UNK
  11. CHERRY FRUIT [Concomitant]
     Dosage: UNK

REACTIONS (1)
  - Incorrect dose administered [Unknown]
